FAERS Safety Report 21453191 (Version 6)
Quarter: 2023Q1

REPORT INFORMATION
  Report Type: Report from Study
  Country: IL (occurrence: None)
  Receive Date: 20221013
  Receipt Date: 20230118
  Transmission Date: 20230417
  Serious: Yes (Hospitalization)
  Sender: FDA-Public Use
  Company Number: IL-Eisai Medical Research-EC-2022-125611

PATIENT
  Age: 59 Year
  Sex: Female
  Weight: 53 kg

DRUGS (10)
  1. LENVATINIB [Suspect]
     Active Substance: LENVATINIB
     Indication: Malignant melanoma
     Dosage: STARTING DOSE AT 20 MG, (FLUCTUATED DOSAGE)
     Route: 048
     Dates: start: 20220313, end: 20220730
  2. QUAVONLIMAB [Suspect]
     Active Substance: QUAVONLIMAB
     Indication: Malignant melanoma
     Dosage: MK-1308A (MK-1308 25 MG (+) MK-3475 400 MG)
     Route: 042
     Dates: start: 20220313, end: 20220915
  3. ATORVASTATIN [Concomitant]
     Active Substance: ATORVASTATIN
     Dates: start: 20220131
  4. LEVOTHYROXINE SODIUM [Concomitant]
     Active Substance: LEVOTHYROXINE SODIUM
     Dates: start: 20220131
  5. LORATADINE [Concomitant]
     Active Substance: LORATADINE
     Dates: start: 20220405
  6. LORAZEPAM [Concomitant]
     Active Substance: LORAZEPAM
     Dates: start: 20220810
  7. DIPYRONE [Concomitant]
     Active Substance: DIPYRONE
     Dates: start: 20220810
  8. LOPERAMIDE [Concomitant]
     Active Substance: LOPERAMIDE
     Dates: start: 20220716
  9. PRAMINE [Concomitant]
     Active Substance: IMIPRAMINE HYDROCHLORIDE
     Dates: start: 20220912, end: 20220914
  10. PEMBROLIZUMAB [Suspect]
     Active Substance: PEMBROLIZUMAB
     Dates: start: 20220313

REACTIONS (1)
  - Immune-mediated enterocolitis [Not Recovered/Not Resolved]

NARRATIVE: CASE EVENT DATE: 20220924
